FAERS Safety Report 21701553 (Version 1)
Quarter: 2022Q4

REPORT INFORMATION
  Report Type: Report from Study
  Country: US (occurrence: US)
  Receive Date: 20221208
  Receipt Date: 20221208
  Transmission Date: 20230113
  Serious: No
  Sender: FDA-Public Use
  Company Number: US-ABBVIE-4228535

PATIENT
  Sex: Female

DRUGS (1)
  1. VENCLEXTA [Suspect]
     Active Substance: VENETOCLAX
     Indication: Chemotherapy
     Dosage: 1 P.O DAILY TAKE FOR 14 DAYS AND THEN TAKE 14 DAYS OFF?100 MILLIGRAM
     Route: 048

REACTIONS (1)
  - Off label use [Unknown]
